FAERS Safety Report 5389118-7 (Version None)
Quarter: 2007Q3

REPORT INFORMATION
  Report Type: 
  Country: None (occurrence: None)
  Receive Date: 20070717
  Receipt Date: 20070706
  Transmission Date: 20080115
  Serious: Yes (Other)
  Sender: FDA-Public Use
  Company Number: US-AMGEN-US227483

PATIENT
  Sex: Male

DRUGS (4)
  1. NEUPOGEN [Suspect]
     Indication: MYELODYSPLASTIC SYNDROME
     Route: 065
     Dates: start: 20060501
  2. VIDAZA [Concomitant]
     Route: 065
     Dates: start: 20060101, end: 20070101
  3. DACOGEN [Concomitant]
     Route: 065
     Dates: start: 20070101, end: 20070601
  4. PLATELETS [Concomitant]
     Route: 042

REACTIONS (1)
  - ACUTE MYELOID LEUKAEMIA [None]
